FAERS Safety Report 7415801-5 (Version None)
Quarter: 2011Q2

REPORT INFORMATION
  Report Type: 
  Country: None (occurrence: None)
  Receive Date: 20110414
  Receipt Date: 20110408
  Transmission Date: 20111010
  Serious: Yes (Hospitalization)
  Sender: FDA-Public Use
  Company Number: JP-JNJFOC-20110401332

PATIENT
  Sex: Male
  Weight: 76 kg

DRUGS (12)
  1. PREDNISOLONE [Concomitant]
  2. PREDONINE [Suspect]
     Route: 048
  3. PREDONINE [Suspect]
     Route: 048
  4. PREDONINE [Suspect]
     Route: 048
  5. PREDONINE [Suspect]
     Route: 048
  6. PREDONINE [Suspect]
     Indication: PRODUCT USED FOR UNKNOWN INDICATION
     Route: 048
  7. PENTASA [Concomitant]
     Route: 048
  8. REMICADE [Suspect]
     Route: 042
  9. REMICADE [Suspect]
     Route: 042
  10. PREDONINE [Suspect]
     Route: 048
  11. MUCOSTA [Concomitant]
     Route: 048
  12. REMICADE [Suspect]
     Indication: COLITIS ULCERATIVE
     Route: 042

REACTIONS (3)
  - MALNUTRITION [None]
  - CANDIDIASIS [None]
  - COLITIS ULCERATIVE [None]
